FAERS Safety Report 4835848-2 (Version None)
Quarter: 2005Q4

REPORT INFORMATION
  Report Type: 
  Country: None (occurrence: None)
  Receive Date: 20051123
  Receipt Date: 20051121
  Transmission Date: 20060501
  Serious: Yes (Other)
  Sender: FDA-Public Use
  Company Number: US-BRISTOL-MYERS SQUIBB COMPANY-13190343

PATIENT
  Age: 66 Year
  Sex: Female

DRUGS (3)
  1. CETUXIMAB [Suspect]
     Indication: NON-SMALL CELL LUNG CANCER
     Dosage: COURSE 3, DOSING 306 MG (INTERRUPTED, DOSE REDUCED, STOPPED). THERAPY START DATE 03-NOV-05.
     Route: 042
     Dates: start: 20051121, end: 20051121
  2. CARBOPLATIN [Suspect]
     Indication: NON-SMALL CELL LUNG CANCER
     Dosage: COURSE 2. THERAPY START DATE 03-NOV-2005.
     Route: 042
     Dates: start: 20051121, end: 20051121
  3. TAXOTERE [Suspect]
     Indication: NON-SMALL CELL LUNG CANCER
     Dosage: 2ND COURSE. THERAPY START DATE 03-NOV-2005.
     Route: 042
     Dates: start: 20051121, end: 20051121

REACTIONS (1)
  - CHEST PAIN [None]
